FAERS Safety Report 10626287 (Version 1)
Quarter: 2014Q4

REPORT INFORMATION
  Report Type: Spontaneous
  Country: US (occurrence: None)
  Receive Date: 20141121
  Receipt Date: 20141121
  Transmission Date: 20150529
  Serious: No
  Sender: FDA-Public Use
  Company Number: 163-10004-14081608

PATIENT
  Age: 54 Year
  Sex: Male

DRUGS (2)
  1. OTEZLA [Suspect]
     Active Substance: APREMILAST
     Indication: PSORIATIC ARTHROPATHY
     Dosage: TITRATION PACK, NOT PROVIDED, PO
     Route: 048
     Dates: start: 20140519
  2. METHOTREXATE(METHOTREXATE) [Concomitant]

REACTIONS (2)
  - Nausea [None]
  - Diarrhoea [None]

NARRATIVE: CASE EVENT DATE: 2014
